FAERS Safety Report 13301095 (Version 1)
Quarter: 2017Q1

REPORT INFORMATION
  Report Type: Spontaneous
  Country: US (occurrence: US)
  Receive Date: 20170306
  Receipt Date: 20170306
  Transmission Date: 20170428
  Serious: Yes (Hospitalization)
  Sender: FDA-Public Use
  Company Number: None

PATIENT
  Age: 75 Year
  Sex: Male
  Weight: 101.7 kg

DRUGS (5)
  1. METFORMIN [Concomitant]
     Active Substance: METFORMIN HYDROCHLORIDE
  2. GLIPIZIDE ER [Concomitant]
     Active Substance: GLIPIZIDE
  3. AMLODIPINE [Suspect]
     Active Substance: AMLODIPINE BESYLATE
     Indication: HYPERTENSION
     Route: 048
  4. SENOKOT-S [Concomitant]
     Active Substance: DOCUSATE SODIUM\SENNOSIDES
  5. ASPIRIN 81 [Concomitant]
     Active Substance: ASPIRIN

REACTIONS (5)
  - Dizziness [None]
  - Blood glucose increased [None]
  - Fatigue [None]
  - Gastric ulcer [None]
  - Faeces discoloured [None]

NARRATIVE: CASE EVENT DATE: 20170209
